FAERS Safety Report 6668474-3 (Version None)
Quarter: 2010Q2

REPORT INFORMATION
  Report Type: 
  Country: None (occurrence: None)
  Receive Date: 20100406
  Receipt Date: 20100326
  Transmission Date: 20101027
  Serious: Yes (Other)
  Sender: FDA-Public Use
  Company Number: PHEH2007US08976

PATIENT
  Sex: Female
  Weight: 47.619 kg

DRUGS (12)
  1. ESTRADERM [Suspect]
     Indication: MENOPAUSE
     Dosage: 0.05 MG, UNK
     Route: 062
     Dates: start: 19950531, end: 19950101
  2. PROVERA [Suspect]
     Indication: MENOPAUSE
     Dosage: 10 MG, UNK
     Route: 048
     Dates: start: 19940527, end: 19960226
  3. ORTHO-EST [Suspect]
     Indication: MENOPAUSE
     Dates: start: 19940527
  4. ESTRACE [Suspect]
     Indication: MENOPAUSE
     Dosage: 1-2 MG, UNK
     Route: 048
     Dates: start: 19940624, end: 19960301
  5. PREMPRO [Suspect]
     Indication: MENOPAUSE
     Dosage: 0.625 /2.5 MG, UNK
     Route: 048
     Dates: start: 19960405, end: 19961011
  6. PREMPRO [Suspect]
     Dates: start: 19970101
  7. PREMARIN [Suspect]
  8. NORLULATE [Suspect]
  9. CLIMARA [Suspect]
     Indication: MENOPAUSE
     Dosage: 0.1 MG, UNK
     Dates: start: 19950622
  10. EVISTA [Concomitant]
     Dates: start: 19980101, end: 20050901
  11. CALCIUM [Concomitant]
  12. CLONAZEPAM [Concomitant]

REACTIONS (27)
  - ANXIETY [None]
  - BIOPSY BREAST ABNORMAL [None]
  - BREAST CALCIFICATIONS [None]
  - BREAST CANCER [None]
  - CHONDROPATHY [None]
  - DEFORMITY [None]
  - DEPRESSION [None]
  - HOT FLUSH [None]
  - INJURY [None]
  - JOINT MANIPULATION [None]
  - LUNG DISORDER [None]
  - LUNG NEOPLASM [None]
  - LYMPHADENECTOMY [None]
  - MALIGNANT BREAST LUMP REMOVAL [None]
  - MASTECTOMY [None]
  - NEURALGIA [None]
  - NEUROPATHY PERIPHERAL [None]
  - NUCLEAR MAGNETIC RESONANCE IMAGING ABNORMAL [None]
  - OESTROGEN RECEPTOR ASSAY POSITIVE [None]
  - PAIN [None]
  - PARAESTHESIA [None]
  - PERIARTHRITIS [None]
  - PROGESTERONE RECEPTOR ASSAY POSITIVE [None]
  - RADIOTHERAPY [None]
  - RECTAL POLYP [None]
  - RECTAL POLYPECTOMY [None]
  - SPINAL CORD DISORDER [None]
